FAERS Safety Report 5497277-0 (Version None)
Quarter: 2007Q4

REPORT INFORMATION
  Report Type: 
  Country: None (occurrence: None)
  Receive Date: 20071025
  Receipt Date: 20060922
  Transmission Date: 20080405
  Serious: No
  Sender: FDA-Public Use
  Company Number: A0621169A

PATIENT
  Sex: Female

DRUGS (3)
  1. ADVAIR DISKUS 100/50 [Suspect]
     Indication: ASTHMA
     Route: 055
  2. STEROIDS [Concomitant]
     Route: 048
  3. UNSPECIFIED MEDICATION [Concomitant]

REACTIONS (1)
  - DYSPHONIA [None]
